FAERS Safety Report 4738986-8 (Version None)
Quarter: 2005Q3

REPORT INFORMATION
  Report Type: 
  Country: None (occurrence: None)
  Receive Date: 20050801
  Receipt Date: 20050518
  Transmission Date: 20060218
  Serious: Yes (Hospitalization)
  Sender: FDA-Public Use
  Company Number: 213711

PATIENT
  Age: 74 Year
  Sex: Male

DRUGS (3)
  1. RITUXAN [Suspect]
     Indication: CHRONIC LYMPHOCYTIC LEUKAEMIA
     Dates: start: 20040201
  2. FLUDARABINE PHOSPHATE [Suspect]
  3. CYCLOPHOSPHAMIDE [Suspect]

REACTIONS (1)
  - LOCALISED INFECTION [None]
